FAERS Safety Report 7943555-2 (Version None)
Quarter: 2011Q4

REPORT INFORMATION
  Report Type: 
  Country: None (occurrence: None)
  Receive Date: 20111128
  Receipt Date: 20111118
  Transmission Date: 20120403
  Serious: Yes (Hospitalization)
  Sender: FDA-Public Use
  Company Number: PHHY2011CH101514

PATIENT
  Sex: Female

DRUGS (3)
  1. VENLAFAXINE [Suspect]
  2. SEROQUEL [Concomitant]
  3. LITHIUM [Concomitant]

REACTIONS (2)
  - CONVULSION [None]
  - COMA [None]
